FAERS Safety Report 8432340-3 (Version None)
Quarter: 2012Q2

REPORT INFORMATION
  Report Type: 
  Country: None (occurrence: None)
  Receive Date: 20120613
  Receipt Date: 20120608
  Transmission Date: 20120825
  Serious: Yes (Other)
  Sender: FDA-Public Use
  Company Number: PHHY2012BR049979

PATIENT
  Sex: Female

DRUGS (1)
  1. FORMOTEROL FUMARATE [Suspect]

REACTIONS (4)
  - LIGAMENT INJURY [None]
  - PATELLA FRACTURE [None]
  - BRONCHOSPASM [None]
  - ROAD TRAFFIC ACCIDENT [None]
